FAERS Safety Report 8389025-1 (Version None)
Quarter: 2012Q2

REPORT INFORMATION
  Report Type: 
  Country: None (occurrence: None)
  Receive Date: 20120528
  Receipt Date: 20120523
  Transmission Date: 20120825
  Serious: No
  Sender: FDA-Public Use
  Company Number: US-PFIZER INC-2012124970

PATIENT
  Sex: Female
  Weight: 77.098 kg

DRUGS (3)
  1. LEVOXYL [Suspect]
     Indication: HYPERTHYROIDISM
     Dosage: 125 UG, DAILY
  2. LIPITOR [Concomitant]
     Indication: BLOOD CHOLESTEROL INCREASED
     Dosage: 40 MG, DAILY
  3. DIOVAN [Concomitant]
     Indication: HYPERTENSION
     Dosage: 40 MG, DAILY

REACTIONS (2)
  - INCORRECT DOSE ADMINISTERED [None]
  - THYROID FUNCTION TEST ABNORMAL [None]
